FAERS Safety Report 7305759-1 (Version None)
Quarter: 2011Q1

REPORT INFORMATION
  Report Type: 
  Country: None (occurrence: None)
  Receive Date: 20110222
  Receipt Date: 20110216
  Transmission Date: 20110831
  Serious: Yes (Hospitalization)
  Sender: FDA-Public Use
  Company Number: B0699542A

PATIENT
  Sex: Female

DRUGS (9)
  1. DEPAS [Concomitant]
     Indication: ANXIETY
     Route: 048
     Dates: end: 20110208
  2. HALCION [Concomitant]
     Indication: INSOMNIA
     Dosage: .125MG PER DAY
     Route: 048
     Dates: end: 20110208
  3. BUFFERIN [Concomitant]
  4. SUMATRIPTAN SUCCINATE [Suspect]
     Indication: MIGRAINE
     Dosage: 50MG PER DAY
     Route: 048
     Dates: end: 20110208
  5. MAGLAX [Concomitant]
     Indication: CONSTIPATION
     Dosage: 2IUAX PER DAY
     Route: 048
     Dates: end: 20110208
  6. NSAIDS [Concomitant]
  7. ZOLOFT [Concomitant]
     Indication: DEPRESSION
     Dosage: 25MG PER DAY
     Route: 048
     Dates: end: 20110208
  8. ROHYPNOL [Concomitant]
     Indication: INSOMNIA
     Dosage: 2MG PER DAY
     Route: 048
     Dates: end: 20110208
  9. GASTER D [Concomitant]
     Dosage: 20MG PER DAY
     Route: 048
     Dates: end: 20110208

REACTIONS (7)
  - HALLUCINATION [None]
  - HALLUCINATION, VISUAL [None]
  - MEMORY IMPAIRMENT [None]
  - FEELING ABNORMAL [None]
  - CONVULSION [None]
  - HALLUCINATION, AUDITORY [None]
  - DELUSION [None]
